FAERS Safety Report 10250434 (Version 1)
Quarter: 2014Q2

REPORT INFORMATION
  Report Type: Spontaneous
  Country: US (occurrence: None)
  Receive Date: 20140618
  Receipt Date: 20140618
  Transmission Date: 20141212
  Serious: Yes (Other)
  Sender: FDA-Public Use
  Company Number: None

PATIENT
  Age: 86 Year
  Sex: Female
  Weight: 58.97 kg

DRUGS (6)
  1. SERTRALINE [Suspect]
     Indication: DEMENTIA ALZHEIMER^S TYPE
     Dosage: EITHER 2 ML OR 1 PILL ONCE AT EVENING DAILY BY MOUTH
     Route: 048
     Dates: start: 201201, end: 201311
  2. SERTRALINE [Suspect]
     Indication: URINARY TRACT INFECTION
     Dosage: EITHER 2 ML OR 1 PILL ONCE AT EVENING DAILY BY MOUTH
     Route: 048
     Dates: start: 201201, end: 201311
  3. CRANBERRY [Suspect]
  4. MAGNESIUM [Suspect]
  5. VITAMIN D [Suspect]
  6. ALIGN [Suspect]

REACTIONS (5)
  - Abnormal behaviour [None]
  - Depressed level of consciousness [None]
  - Decreased interest [None]
  - Faecal incontinence [None]
  - Urinary incontinence [None]
